FAERS Safety Report 14757951 (Version 2)
Quarter: 2020Q2

REPORT INFORMATION
  Report Type: Spontaneous
  Country: US (occurrence: US)
  Receive Date: 20180413
  Receipt Date: 20200527
  Transmission Date: 20200713
  Serious: Yes (Hospitalization, Other)
  Sender: FDA-Public Use
  Company Number: US-ASTRAZENECA-2018SE44466

PATIENT
  Age: 24417 Day
  Sex: Male
  Weight: 103.4 kg

DRUGS (23)
  1. AMARYL [Concomitant]
     Active Substance: GLIMEPIRIDE
  2. PRAVACHOL [Concomitant]
     Active Substance: PRAVASTATIN SODIUM
  3. HYDROCHLOROTHIAZIDE. [Concomitant]
     Active Substance: HYDROCHLOROTHIAZIDE
  4. VENOFER [Concomitant]
     Active Substance: IRON SUCROSE
  5. KLOR-CON [Concomitant]
     Active Substance: POTASSIUM CHLORIDE
  6. KOMBIGLYZE XR [Suspect]
     Active Substance: METFORMIN HYDROCHLORIDE\SAXAGLIPTIN HYDROCHLORIDE
     Indication: DIABETES MELLITUS
     Route: 048
     Dates: start: 2011
  7. AMBIEN [Concomitant]
     Active Substance: ZOLPIDEM TARTRATE
  8. REMERON [Concomitant]
     Active Substance: MIRTAZAPINE
  9. COLACE [Concomitant]
     Active Substance: DOCUSATE SODIUM
  10. NITROSTAT [Concomitant]
     Active Substance: NITROGLYCERIN
  11. LASIX [Concomitant]
     Active Substance: FUROSEMIDE
  12. COUMADIN [Concomitant]
     Active Substance: WARFARIN SODIUM
  13. CIPROFLOXACIN. [Concomitant]
     Active Substance: CIPROFLOXACIN
  14. NOVOLOG [Concomitant]
     Active Substance: INSULIN ASPART
  15. ONGLYZA [Suspect]
     Active Substance: SAXAGLIPTIN HYDROCHLORIDE
     Indication: DIABETES MELLITUS
     Route: 048
     Dates: start: 20110415, end: 20130422
  16. REGLAN [Concomitant]
     Active Substance: METOCLOPRAMIDE HYDROCHLORIDE
  17. COREG [Concomitant]
     Active Substance: CARVEDILOL
  18. TRAMADOL. [Concomitant]
     Active Substance: TRAMADOL
  19. JANUVIA [Concomitant]
     Active Substance: SITAGLIPTIN PHOSPHATE
  20. SPIRONOLACTONE. [Concomitant]
     Active Substance: SPIRONOLACTONE
  21. ASPIRIN. [Concomitant]
     Active Substance: ASPIRIN
  22. SENOKOT [Concomitant]
     Active Substance: SENNOSIDES
  23. EFFIENT [Concomitant]
     Active Substance: PRASUGREL HYDROCHLORIDE

REACTIONS (12)
  - Acute left ventricular failure [Unknown]
  - Acute myocardial infarction [Unknown]
  - Tricuspid valve incompetence [Unknown]
  - Cardiac failure [Unknown]
  - Left ventricular failure [Unknown]
  - Aortic valve incompetence [Unknown]
  - Left ventricular dysfunction [Unknown]
  - Cardiac failure congestive [Unknown]
  - Cardiac valve disease [Unknown]
  - Mitral valve incompetence [Unknown]
  - Heart injury [Unknown]
  - Acute respiratory failure [Unknown]

NARRATIVE: CASE EVENT DATE: 20111222
